FAERS Safety Report 8350334-3 (Version None)
Quarter: 2012Q2

REPORT INFORMATION
  Report Type: 
  Country: None (occurrence: None)
  Receive Date: 20120510
  Receipt Date: 20120430
  Transmission Date: 20120825
  Serious: Yes (Other)
  Sender: FDA-Public Use
  Company Number: FR-ROCHE-1047041

PATIENT
  Sex: Male
  Weight: 74.093 kg

DRUGS (6)
  1. FLUTICASONE PROPIONATE/SALMETEROL [Concomitant]
  2. DESLORATADINE [Concomitant]
  3. ATROVENT [Concomitant]
  4. XOLAIR [Suspect]
     Indication: ASTHMA
     Dates: start: 20070802
  5. SINGULAIR [Concomitant]
     Dates: start: 19980101
  6. CORTICOSTEROIDS (UNK INGREDIENTS) [Concomitant]

REACTIONS (3)
  - MONOCLONAL GAMMOPATHY [None]
  - SPINAL PAIN [None]
  - SPINAL COMPRESSION FRACTURE [None]
